FAERS Safety Report 4580616-2 (Version None)
Quarter: 2005Q1

REPORT INFORMATION
  Report Type: 
  Country: None (occurrence: None)
  Receive Date: 20050214
  Receipt Date: 20040426
  Transmission Date: 20050727
  Serious: No
  Sender: FDA-Public Use
  Company Number: US-GLAXOSMITHKLINE-A0508465A

PATIENT
  Age: 39 Year
  Sex: Male
  Weight: 96.8 kg

DRUGS (4)
  1. LAMICTAL [Suspect]
     Indication: BIPOLAR DISORDER
     Route: 048
     Dates: start: 20040223, end: 20040227
  2. WELLBUTRIN XL [Concomitant]
     Dosage: 150MG PER DAY
     Route: 048
     Dates: start: 20040201
  3. LITHIUM [Concomitant]
     Dosage: 900MG PER DAY
     Route: 048
     Dates: start: 20000101
  4. EFFEXOR XR [Concomitant]
     Dosage: 225MG PER DAY
     Dates: start: 20030101

REACTIONS (2)
  - MOUTH ULCERATION [None]
  - RASH [None]
